FAERS Safety Report 14953221 (Version 3)
Quarter: 2023Q1

REPORT INFORMATION
  Report Type: Report from Study
  Country: JP (occurrence: JP)
  Receive Date: 20180530
  Receipt Date: 20230303
  Transmission Date: 20230418
  Serious: Yes (Hospitalization)
  Sender: FDA-Public Use
  Company Number: JP-JNJFOC-20180534713

PATIENT
  Age: 69 Year
  Sex: Male
  Weight: 65 kg

DRUGS (17)
  1. ABIRATERONE ACETATE [Suspect]
     Active Substance: ABIRATERONE ACETATE
     Indication: Hormone-refractory prostate cancer
     Route: 048
     Dates: start: 20180313, end: 20180327
  2. ABIRATERONE ACETATE [Suspect]
     Active Substance: ABIRATERONE ACETATE
     Route: 048
     Dates: end: 20180410
  3. PREDNISOLONE [Suspect]
     Active Substance: PREDNISOLONE
     Indication: Hormone-refractory prostate cancer
     Route: 048
     Dates: start: 20180313
  4. PREDNISOLONE [Suspect]
     Active Substance: PREDNISOLONE
     Route: 048
     Dates: end: 20180410
  5. PREDNISOLONE [Suspect]
     Active Substance: PREDNISOLONE
     Route: 048
     Dates: end: 20180507
  6. PREDNISOLONE [Suspect]
     Active Substance: PREDNISOLONE
     Route: 048
     Dates: end: 20180327
  7. IPATASERTIB [Suspect]
     Active Substance: IPATASERTIB
     Indication: Hormone-refractory prostate cancer
     Route: 048
     Dates: start: 20180313, end: 20180327
  8. IPATASERTIB [Suspect]
     Active Substance: IPATASERTIB
     Route: 048
     Dates: end: 20180410
  9. AMLODIPINE [Suspect]
     Active Substance: AMLODIPINE BESYLATE
     Indication: Product used for unknown indication
     Route: 048
     Dates: end: 20180414
  10. METFORMIN HYDROCHLORIDE [Suspect]
     Active Substance: METFORMIN HYDROCHLORIDE
     Indication: Product used for unknown indication
     Route: 048
     Dates: end: 20180414
  11. SITAGLIPTIN PHOSPHATE [Suspect]
     Active Substance: SITAGLIPTIN PHOSPHATE
     Indication: Product used for unknown indication
     Route: 048
     Dates: end: 20180414
  12. SILODOSIN [Concomitant]
     Active Substance: SILODOSIN
     Route: 048
     Dates: end: 20180327
  13. FEBUXOSTAT [Concomitant]
     Active Substance: FEBUXOSTAT
     Route: 048
  14. URSODIOL [Concomitant]
     Active Substance: URSODIOL
     Route: 048
     Dates: start: 20180313, end: 20180412
  15. LOPERAMIDE HYDROCHLORIDE [Concomitant]
     Active Substance: LOPERAMIDE HYDROCHLORIDE
     Route: 048
     Dates: start: 20180315, end: 20180410
  16. DIETARY SUPPLEMENT\PROBIOTICS [Concomitant]
     Active Substance: DIETARY SUPPLEMENT\PROBIOTICS
     Route: 048
     Dates: start: 20180315, end: 20180410
  17. DEGARELIX ACETATE [Concomitant]
     Active Substance: DEGARELIX ACETATE
     Route: 058
     Dates: start: 20170831

REACTIONS (2)
  - Erythema multiforme [Recovered/Resolved]
  - Hyperglycaemia [Unknown]

NARRATIVE: CASE EVENT DATE: 20180327
